FAERS Safety Report 15365657 (Version 1)
Quarter: 2018Q3

REPORT INFORMATION
  Report Type: Spontaneous
  Country: US (occurrence: US)
  Receive Date: 20180831
  Receipt Date: 20180831
  Transmission Date: 20181010
  Serious: No
  Sender: FDA-Public Use
  Company Number: None

PATIENT
  Age: 56 Year
  Sex: Female
  Weight: 63 kg

DRUGS (11)
  1. LYRICA [Suspect]
     Active Substance: PREGABALIN
     Indication: FIBROMYALGIA
     Route: 048
     Dates: start: 20180430
  2. METHOCARBOMOL [Concomitant]
     Active Substance: METHOCARBAMOL
  3. MAGNESIUM [Concomitant]
     Active Substance: MAGNESIUM
  4. MULTI VITAMIN [Concomitant]
     Active Substance: VITAMINS
  5. MONTELICAST [Concomitant]
  6. CALCIUM [Concomitant]
     Active Substance: CALCIUM
  7. VITAMIN D [Concomitant]
     Active Substance: CHOLECALCIFEROL
  8. PRILOSEC [Concomitant]
     Active Substance: OMEPRAZOLE MAGNESIUM
  9. CALCITONIN [Suspect]
     Active Substance: CALCITONIN
  10. TRIAMTERINE [Concomitant]
  11. LYRICA [Suspect]
     Active Substance: PREGABALIN
     Indication: OSTEOARTHRITIS
     Route: 048
     Dates: start: 20180430

REACTIONS (1)
  - Dysuria [None]

NARRATIVE: CASE EVENT DATE: 20180430
